FAERS Safety Report 8608828 (Version 5)
Quarter: 2014Q1

REPORT INFORMATION
  Report Type: Report from Study
  Country: JP (occurrence: JP)
  Receive Date: 20120611
  Receipt Date: 20140106
  Transmission Date: 20141002
  Serious: Yes (Other)
  Sender: FDA-Public Use
  Company Number: JP-VERTEX PHARMACEUTICALS INC.-AE-2012-008487

PATIENT
  Age: 59 Year
  Sex: Male

DRUGS (5)
  1. VX-950 (TELAPREVIR) [Suspect]
     Indication: CHRONIC HEPATITIS C
     Dosage: 2250 MG, QD
     Route: 048
     Dates: start: 20120418, end: 20120710
  2. RIBAVIRIN [Suspect]
     Indication: CHRONIC HEPATITIS C
     Dosage: 800 MG, QD
     Route: 048
     Dates: start: 20120418
  3. PEGINTERFERON ALFA-2B [Suspect]
     Indication: CHRONIC HEPATITIS C
     Dosage: 1.5 ?G/KG, QW
     Route: 058
     Dates: start: 20120418
  4. URINORM [Concomitant]
     Dosage: 50 MG, QD
     Route: 048
  5. ANTEBATE [Concomitant]
     Dosage: UNK, QD
     Route: 061
     Dates: start: 20120425, end: 20120427

REACTIONS (3)
  - Neutrophil count decreased [Recovered/Resolved]
  - Erythema multiforme [Recovered/Resolved]
  - Haemoglobin decreased [Recovered/Resolved]
